FAERS Safety Report 20219965 (Version 7)
Quarter: 2022Q2

REPORT INFORMATION
  Report Type: Report from Study
  Country: BE (occurrence: BE)
  Receive Date: 20211222
  Receipt Date: 20220621
  Transmission Date: 20220721
  Serious: Yes (Hospitalization)
  Sender: FDA-Public Use
  Company Number: BE-ABBVIE-21K-013-3741206-00

PATIENT
  Age: 66 Year
  Sex: Male
  Weight: 99 kg

DRUGS (33)
  1. CARBIDOPA\LEVODOPA [Suspect]
     Active Substance: CARBIDOPA\LEVODOPA
     Indication: Parkinson^s disease
     Dosage: UNKNOWN DOSAGES
     Route: 050
     Dates: start: 20140128
  2. CARBIDOPA\LEVODOPA [Suspect]
     Active Substance: CARBIDOPA\LEVODOPA
     Dosage: MD=6.5ML, CD=5.3ML/HR DURING 16HRS, ED=3ML
     Route: 050
     Dates: end: 20210115
  3. CARBIDOPA\LEVODOPA [Suspect]
     Active Substance: CARBIDOPA\LEVODOPA
     Dosage: MD=6.5ML, CD=5.1ML/HR DURING 16HRS, ED=4ML
     Route: 050
     Dates: start: 20210115, end: 20210316
  4. CARBIDOPA\LEVODOPA [Suspect]
     Active Substance: CARBIDOPA\LEVODOPA
     Dosage: MD= 2.0 ML, CD= 5.1 ML/HR DURING 16HRS, ED= 1.5 ML
     Route: 050
     Dates: start: 20210316, end: 20210316
  5. CARBIDOPA\LEVODOPA [Suspect]
     Active Substance: CARBIDOPA\LEVODOPA
     Dosage: MD= 2.0 ML, CD= 5.0 ML/HR DURING 16HRS, ED= 1.5 ML
     Route: 050
     Dates: start: 20210318, end: 20210324
  6. CARBIDOPA\LEVODOPA [Suspect]
     Active Substance: CARBIDOPA\LEVODOPA
     Dosage: MD 4.5 ML, CD 4.7 ML/H, ED 1.5 ML, REMAINS AT 16 HOURS
     Route: 050
     Dates: start: 20210324, end: 20210324
  7. CARBIDOPA\LEVODOPA [Suspect]
     Active Substance: CARBIDOPA\LEVODOPA
     Dosage: MD 1.5 ML, CD 4.7 ML/H, ED 1.5 ML
     Route: 050
     Dates: start: 20210324, end: 20210326
  8. CARBIDOPA\LEVODOPA [Suspect]
     Active Substance: CARBIDOPA\LEVODOPA
     Dosage: MD 2.0 ML, CD 4.5 ML/H, ED 1.7 ML
     Route: 050
     Dates: start: 20210326, end: 20210330
  9. CARBIDOPA\LEVODOPA [Suspect]
     Active Substance: CARBIDOPA\LEVODOPA
     Dosage: MD 1.5 ML, CD 4.1 ML/H, ED 1.7 ML
     Route: 050
     Dates: start: 20210330, end: 20210408
  10. CARBIDOPA\LEVODOPA [Suspect]
     Active Substance: CARBIDOPA\LEVODOPA
     Dosage: MD 2.0 ML, CD 3.7 ML/H, ED 1.7 ML DURING 16 HRS
     Route: 050
     Dates: start: 20210408, end: 202104
  11. CARBIDOPA\LEVODOPA [Suspect]
     Active Substance: CARBIDOPA\LEVODOPA
     Dosage: MD 1.5 ML, CD 3.5 ML/H, ED 1.9 ML DURING 16 HRS
     Route: 050
     Dates: start: 20210413, end: 20210415
  12. CARBIDOPA\LEVODOPA [Suspect]
     Active Substance: CARBIDOPA\LEVODOPA
     Dosage: MD 1.4 ML, CD 3.5 ML/H, ED 1.9 ML, DURING 16 HRS
     Route: 050
     Dates: start: 20210415, end: 20210426
  13. CARBIDOPA\LEVODOPA [Suspect]
     Active Substance: CARBIDOPA\LEVODOPA
     Dosage: MD 1.4 ML, CD 3.7 ML/H, ED 2.1 ML, DURING 16 HRS
     Route: 050
     Dates: start: 20210426, end: 20210429
  14. CARBIDOPA\LEVODOPA [Suspect]
     Active Substance: CARBIDOPA\LEVODOPA
     Dosage: MD 1.4 ML, CD 3.6 ML/H, ED 2.1 ML, DURING 16 HRS
     Route: 050
     Dates: start: 20210429, end: 20210507
  15. CARBIDOPA\LEVODOPA [Suspect]
     Active Substance: CARBIDOPA\LEVODOPA
     Dosage: MD 1.7 ML, CD 3.7 ML/H, ED 2.0 ML, DURING 16 HRS
     Route: 050
     Dates: start: 20210507, end: 20210601
  16. CARBIDOPA\LEVODOPA [Suspect]
     Active Substance: CARBIDOPA\LEVODOPA
     Dosage: MD 1.5 ML, CD 3.7 ML/H, ED 2.0 ML, DURING 16 HRS
     Route: 050
     Dates: start: 20210601, end: 20210921
  17. CARBIDOPA\LEVODOPA [Suspect]
     Active Substance: CARBIDOPA\LEVODOPA
     Dosage: MD 1.4 ML, CD 3.5 ML/H, ED 2.0 ML, DURING 16 HRS
     Route: 050
     Dates: start: 20210921, end: 20211108
  18. CARBIDOPA\LEVODOPA [Suspect]
     Active Substance: CARBIDOPA\LEVODOPA
     Dosage: MD 1.4 ML; CD 3.2ML/H; ED 2.1 ML; DURING 16 HRS
     Route: 050
     Dates: start: 20211109, end: 20211110
  19. CARBIDOPA\LEVODOPA [Suspect]
     Active Substance: CARBIDOPA\LEVODOPA
     Dosage: MD 1.4 ML; CD 3.0 ML/H; ED 2.1 ML; DURING 16 HRS
     Route: 050
     Dates: start: 20211110, end: 20211222
  20. CARBIDOPA\LEVODOPA [Suspect]
     Active Substance: CARBIDOPA\LEVODOPA
     Dosage: MD 1.4 ML; CD 2.7 ML/H; ED 2.1 ML; DURING 16 HRS
     Route: 050
     Dates: start: 20211222, end: 20220106
  21. CARBIDOPA\LEVODOPA [Suspect]
     Active Substance: CARBIDOPA\LEVODOPA
     Dosage: MD 1.3 ML; CD 2.6 ML/H; ED 2.1 ML; DURING 16 HRS
     Route: 050
     Dates: start: 20220106, end: 20220114
  22. CARBIDOPA\LEVODOPA [Suspect]
     Active Substance: CARBIDOPA\LEVODOPA
     Dosage: MD 1.3 ML; CD 2.4 ML/H; ED 2.1 ML; DURING 16 HRS
     Route: 050
     Dates: start: 20220114, end: 20220117
  23. CARBIDOPA\LEVODOPA [Suspect]
     Active Substance: CARBIDOPA\LEVODOPA
     Dosage: MD 1.2 ML; CD 2.3 ML/H; ED 2.1 ML; DURING 16 HRS
     Route: 050
     Dates: start: 20220117, end: 20220125
  24. CARBIDOPA\LEVODOPA [Suspect]
     Active Substance: CARBIDOPA\LEVODOPA
     Dosage: MD 1.2 ML; CD 2.1 ML/H; ED 1.0 ML
     Route: 050
     Dates: start: 20220125, end: 20220211
  25. CARBIDOPA\LEVODOPA [Suspect]
     Active Substance: CARBIDOPA\LEVODOPA
     Dosage: MD 1.2 ML; CD 2.1 ML/H; ED 1.0 ML; DURING 16 HRS
     Route: 050
     Dates: start: 20220211, end: 20220325
  26. CARBIDOPA\LEVODOPA [Suspect]
     Active Substance: CARBIDOPA\LEVODOPA
     Dosage: MD 1.2 ML; CD 1.2ML/H; ED 0.5 ML; DURING 16 HRS
     Route: 050
     Dates: start: 20220325, end: 2022
  27. BENSERAZIDE\LEVODOPA [Concomitant]
     Active Substance: BENSERAZIDE\LEVODOPA
     Indication: Parkinson^s disease
     Dosage: FORM STRENGTH: 100MG/25MG; UNIT DOSE: 2 CAPSULES
     Route: 048
  28. BENSERAZIDE\LEVODOPA [Concomitant]
     Active Substance: BENSERAZIDE\LEVODOPA
     Indication: Parkinson^s disease
     Dosage: FORM STRENGTH: 100MG/25MG, AFTER START DUODOPA THERAPY, 2 HOURS AFTER CONNECTING PUMP
     Route: 048
  29. BENSERAZIDE\LEVODOPA [Concomitant]
     Active Substance: BENSERAZIDE\LEVODOPA
     Dosage: AT 11H, 14H, 17H AND 19H30
     Route: 048
     Dates: end: 202103
  30. BENSERAZIDE\LEVODOPA [Concomitant]
     Active Substance: BENSERAZIDE\LEVODOPA
     Dosage: 2 TABLET AT BEDTIME
  31. BENSERAZIDE\LEVODOPA [Concomitant]
     Active Substance: BENSERAZIDE\LEVODOPA
     Dosage: 1 TABLET AT 06:00 AND EVENING AS NEEDED
  32. STALEVO [Concomitant]
     Active Substance: CARBIDOPA\ENTACAPONE\LEVODOPA
     Indication: Parkinson^s disease
     Dosage: FORM STRENGTH: 200MG/50MG/200MG
     Route: 048
  33. BENSERAZIDE\LEVODOPA [Concomitant]
     Active Substance: BENSERAZIDE\LEVODOPA
     Indication: Product used for unknown indication
     Dosage: FORM STRENGTH: 100MG/25MG

REACTIONS (11)
  - Spinal operation [Unknown]
  - Intentional product misuse [Unknown]
  - Muscle rigidity [Unknown]
  - Balance disorder [Unknown]
  - Cognitive disorder [Unknown]
  - Mobility decreased [Unknown]
  - Gait disturbance [Unknown]
  - Dyskinesia [Not Recovered/Not Resolved]
  - Freezing phenomenon [Not Recovered/Not Resolved]
  - Therapeutic product effect incomplete [Recovered/Resolved]
  - On and off phenomenon [Not Recovered/Not Resolved]
